FAERS Safety Report 20996747 (Version 2)
Quarter: 2022Q2

REPORT INFORMATION
  Report Type: Report from Study
  Country: CN (occurrence: CN)
  Receive Date: 20220623
  Receipt Date: 20220628
  Transmission Date: 20220721
  Serious: Yes (Other)
  Sender: FDA-Public Use
  Company Number: CN-BoehringerIngelheim-2022-BI-176676

PATIENT
  Age: 57 Year
  Sex: Female
  Weight: 87.5 kg

DRUGS (11)
  1. TENECTEPLASE [Suspect]
     Active Substance: TENECTEPLASE
     Indication: Ischaemic stroke
     Route: 042
     Dates: start: 20220601
  2. ATORVASTATIN CALCIUM [Concomitant]
     Active Substance: ATORVASTATIN CALCIUM
     Indication: Ischaemic stroke
     Route: 048
     Dates: start: 20220601, end: 20220611
  3. OZAGREL SODIUM [Concomitant]
     Active Substance: OZAGREL SODIUM
     Indication: Ischaemic stroke
     Route: 042
     Dates: start: 20220602, end: 20220602
  4. OZAGREL SODIUM [Concomitant]
     Active Substance: OZAGREL SODIUM
     Route: 042
     Dates: start: 20220603, end: 20220611
  5. ASPIRIN [Concomitant]
     Active Substance: ASPIRIN
     Indication: Ischaemic stroke
     Route: 048
     Dates: start: 20220602, end: 20220611
  6. METFORMIN HYDROCHLORIDE [Concomitant]
     Active Substance: METFORMIN HYDROCHLORIDE
     Indication: Diabetes mellitus
     Dosage: FORM-EXTENDED-RELEASE TABLETS
     Route: 048
     Dates: start: 2014, end: 20220603
  7. METFORMIN HYDROCHLORIDE [Concomitant]
     Active Substance: METFORMIN HYDROCHLORIDE
     Dosage: FORM-EXTENDED-RELEASE TABLETS
     Route: 048
     Dates: start: 20220604
  8. METFORMIN HYDROCHLORIDE [Concomitant]
     Active Substance: METFORMIN HYDROCHLORIDE
     Route: 048
     Dates: start: 20220612, end: 20220612
  9. DAPAGLIFLOZIN [Concomitant]
     Active Substance: DAPAGLIFLOZIN
     Indication: Proteinuria
     Route: 048
     Dates: start: 20220605
  10. IRBESARTAN [Concomitant]
     Active Substance: IRBESARTAN
     Indication: Proteinuria
     Route: 048
     Dates: start: 20220610
  11. CALCIUM HYDROXYBENZENESULFONATE [Concomitant]
     Route: 048
     Dates: start: 20220612

REACTIONS (1)
  - Hydronephrosis [Not Recovered/Not Resolved]

NARRATIVE: CASE EVENT DATE: 20220606
